FAERS Safety Report 6052203 (Version 1)
Quarter: 2020Q3

REPORT INFORMATION
  Report Type: Report from Study
  Country: CA (occurrence: CA)
  Receive Date: 20060525
  Receipt Date: 20060525
  Transmission Date: 20201104
  Serious: Yes (Death)
  Sender: FDA-Public Use
  Company Number: CA-ROCHE-399086

PATIENT
  Age: 56 Year
  Sex: Male
  Weight: 90 kg

DRUGS (8)
  1. DECADRON [Concomitant]
     Active Substance: DEXAMETHASONE
     Dates: start: 20040824
  2. VITAMINS NOS [Concomitant]
     Active Substance: VITAMINS
     Dates: start: 20020615
  3. AVASTIN [Suspect]
     Active Substance: BEVACIZUMAB
     Dosage: ACTUAL DOSE WAS REPORTED AS 652.5 MG ONCE EVERY THREE WEEKS.
     Route: 042
     Dates: start: 20040824, end: 20050317
  4. OXALIPLATIN. [Suspect]
     Active Substance: OXALIPLATIN
     Dosage: DOSE = 210MG
     Route: 042
     Dates: start: 20040824, end: 20050317
  5. COUMADIN [Concomitant]
     Active Substance: WARFARIN SODIUM
     Dates: start: 20040819
  6. ZOPICLONE [Concomitant]
     Active Substance: ZOPICLONE
     Dates: start: 20040914
  7. CAPECITABINE. [Suspect]
     Active Substance: CAPECITABINE
     Dosage: GIVEN FOR TWO WEEKS FOLLOWED BY ONE WEEK REST. DOSE = 1650MG BID
     Route: 048
     Dates: start: 20040824, end: 20050316
  8. KYTRIL [Concomitant]
     Active Substance: GRANISETRON HYDROCHLORIDE
     Dates: start: 20040824

REACTIONS (2)
  - Arrhythmia [None]
  - Sudden death [Fatal]

NARRATIVE: CASE EVENT DATE: 20050317
